FAERS Safety Report 4886628-3 (Version None)
Quarter: 2006Q1

REPORT INFORMATION
  Report Type: 
  Country: None (occurrence: None)
  Receive Date: 20060119
  Receipt Date: 20060110
  Transmission Date: 20060701
  Serious: Yes (Hospitalization)
  Sender: FDA-Public Use
  Company Number: 2006-US-00341

PATIENT
  Age: 63 Year
  Sex: Female

DRUGS (2)
  1. ONXOL (PACLITAXEL) [Suspect]
     Indication: OVARIAN CANCER
     Dosage: 175 MG/M2
     Dates: start: 20040527
  2. CARBOPLATIN [Suspect]
     Dosage: 175 MG/M2
     Dates: start: 20040527

REACTIONS (3)
  - DIZZINESS [None]
  - INAPPROPRIATE ANTIDIURETIC HORMONE SECRETION [None]
  - LOSS OF CONSCIOUSNESS [None]
